FAERS Safety Report 16987281 (Version 6)
Quarter: 2024Q4

REPORT INFORMATION
  Report Type: Spontaneous
  Country: ES (occurrence: ES)
  Receive Date: 20191104
  Receipt Date: 20241018
  Transmission Date: 20250114
  Serious: Yes (Other)
  Sender: CELLTRION
  Company Number: ES-CELLTRION INC.-2019ES025973

PATIENT

DRUGS (11)
  1. RITUXIMAB [Suspect]
     Active Substance: RITUXIMAB
     Indication: Extranodal marginal zone B-cell lymphoma (MALT type)
     Dosage: FIRST CYCLE (ADDITIONAL INFORMATION ON DRUG (CODED): OFF LABEL USE)
     Route: 065
  2. RITUXIMAB [Suspect]
     Active Substance: RITUXIMAB
     Dosage: SECOND CYCLE (ADDITIONAL INFORMATION ON DRUG (CODED): OFF LABEL USE)
     Route: 065
  3. BENDAMUSTINE [Suspect]
     Active Substance: BENDAMUSTINE
     Indication: Extranodal marginal zone B-cell lymphoma (MALT type)
     Dosage: FIRST CYCLE
     Route: 065
  4. BENDAMUSTINE [Suspect]
     Active Substance: BENDAMUSTINE
     Dosage: SECOND CYCLE
     Route: 065
  5. OMALIZUMAB [Suspect]
     Active Substance: OMALIZUMAB
     Indication: Immune tolerance induction
     Dosage: 300 MG (ADDITIONAL INFORMATION ON DRUG (FREE TEXT): {CNAPPROVALNUMBER_NGX}NOT APPLICABLE{/CNAPPROVAL
     Route: 065
  6. OMALIZUMAB [Suspect]
     Active Substance: OMALIZUMAB
     Indication: Urticaria
  7. RANITIDINE [Concomitant]
     Active Substance: RANITIDINE
     Indication: Premedication
     Dosage: (DOSAGE TEXT: UNK)
     Route: 065
  8. METHYLPREDNISOLONE [Concomitant]
     Active Substance: METHYLPREDNISOLONE
     Indication: Premedication
     Dosage: (DOSAGE TEXT: UNK)
     Route: 065
  9. MONTELUKAST [Concomitant]
     Active Substance: MONTELUKAST
     Indication: Premedication
     Dosage: (DOSAGE TEXT: UNK)
     Route: 065
  10. DEXCHLORPHENIRAMINE [Concomitant]
     Active Substance: DEXCHLORPHENIRAMINE
     Indication: Premedication
     Dosage: (DOSAGE TEXT: UNK)
     Route: 065
  11. SALICYLIC ACID [Concomitant]
     Active Substance: SALICYLIC ACID
     Indication: Premedication
     Dosage: UNK
     Route: 065

REACTIONS (7)
  - Hyperhidrosis [Unknown]
  - Confusional state [Unknown]
  - Urticaria [Unknown]
  - Hypersensitivity [Not Recovered/Not Resolved]
  - Hypotension [Unknown]
  - Immune tolerance induction [Unknown]
  - Off label use [Unknown]
